FAERS Safety Report 7384822-3 (Version None)
Quarter: 2011Q1

REPORT INFORMATION
  Report Type: 
  Country: None (occurrence: None)
  Receive Date: 20110330
  Receipt Date: 20110301
  Transmission Date: 20110831
  Serious: Yes (Hospitalization, Disabling, Other)
  Sender: FDA-Public Use
  Company Number: US-BAYER-201031775NA

PATIENT
  Sex: Female
  Weight: 79 kg

DRUGS (10)
  1. YASMIN [Suspect]
     Indication: MENSTRUAL CYCLE MANAGEMENT
     Route: 048
     Dates: start: 20070201, end: 20070401
  2. YAZ [Suspect]
     Indication: MENSTRUAL CYCLE MANAGEMENT
     Route: 048
     Dates: start: 20070201, end: 20070401
  3. IBUPROFEN [Concomitant]
     Dates: start: 20000101
  4. AZITHROMYCIN [Concomitant]
     Dates: start: 20071001
  5. CLINDAMYCIN [Concomitant]
     Dates: start: 20070801, end: 20071001
  6. METHOCARBAMOL [Concomitant]
     Indication: MUSCLE RELAXANT THERAPY
     Dates: start: 20070305, end: 20081201
  7. CHANTIX [Concomitant]
     Indication: EX-TOBACCO USER
  8. UNCODEABLE ^UNCLASSIFIABLE^ [Concomitant]
     Dates: start: 20070305
  9. ALDARA [Concomitant]
  10. ACETAMINOPHEN W/ PROPOXYPHENE HCL [Concomitant]
     Dates: start: 20070305

REACTIONS (21)
  - FATIGUE [None]
  - ANXIETY [None]
  - BRAIN STEM INFARCTION [None]
  - HEMIPARESIS [None]
  - URINARY TRACT INFECTION [None]
  - PANIC DISORDER [None]
  - PALPITATIONS [None]
  - DYSARTHRIA [None]
  - CEREBROVASCULAR ACCIDENT [None]
  - DIZZINESS [None]
  - MOBILITY DECREASED [None]
  - VERTEBRAL ARTERY OCCLUSION [None]
  - VERTIGO [None]
  - VOMITING [None]
  - MOTOR DYSFUNCTION [None]
  - MIGRAINE [None]
  - TREMOR [None]
  - CEREBRAL THROMBOSIS [None]
  - HEADACHE [None]
  - CEREBELLAR INFARCTION [None]
  - NAUSEA [None]
